FAERS Safety Report 6468586-3 (Version None)
Quarter: 2009Q4

REPORT INFORMATION
  Report Type: 
  Country: None (occurrence: None)
  Receive Date: 20091203
  Receipt Date: 20091122
  Transmission Date: 20100525
  Serious: Yes (Other)
  Sender: FDA-Public Use
  Company Number: ZA-BAYER-200938634GPV

PATIENT
  Age: 29 Year
  Sex: Female

DRUGS (2)
  1. YAZ [Suspect]
     Indication: CONTRACEPTION
     Route: 048
     Dates: start: 20090824, end: 20090901
  2. YAZ [Suspect]
     Route: 048
     Dates: start: 20091001, end: 20091029

REACTIONS (5)
  - ABDOMINAL DISTENSION [None]
  - EYE IRRITATION [None]
  - HEADACHE [None]
  - INSOMNIA [None]
  - VISION BLURRED [None]
